FAERS Safety Report 6068508-3 (Version None)
Quarter: 2009Q1

REPORT INFORMATION
  Report Type: 
  Country: None (occurrence: None)
  Receive Date: 20090203
  Receipt Date: 20090116
  Transmission Date: 20090719
  Serious: Yes (Hospitalization)
  Sender: FDA-Public Use
  Company Number: 20080323 /

PATIENT
  Age: 44 Year
  Sex: Female

DRUGS (5)
  1. VENOFER [Suspect]
     Indication: IRON DEFICIENCY
     Dosage: 100 MG INTRAVENOUS DRIP
     Route: 041
  2. INNOHEP [Concomitant]
  3. ARANESP [Concomitant]
  4. HEPARIN [Concomitant]
  5. CYCLIZINE (CYCLIZINE) [Concomitant]

REACTIONS (6)
  - ABDOMINAL PAIN [None]
  - BLOOD PRESSURE INCREASED [None]
  - CATHETER RELATED COMPLICATION [None]
  - HAEMATEMESIS [None]
  - HAEMOLYSIS [None]
  - PANCREATITIS ACUTE [None]
